FAERS Safety Report 21218928 (Version 1)
Quarter: 2022Q3

REPORT INFORMATION
  Report Type: Report from Study
  Country: US (occurrence: US)
  Receive Date: 20220816
  Receipt Date: 20220816
  Transmission Date: 20221027
  Serious: No
  Sender: FDA-Public Use
  Company Number: US-INCYTE CORPORATION-2022IN006812

PATIENT

DRUGS (1)
  1. JAKAFI [Suspect]
     Active Substance: RUXOLITINIB
     Dosage: 95 MILLIGRAM, BID. 14 DAYS ON AND 14 DAYS OFF
     Route: 048

REACTIONS (1)
  - Product availability issue [Unknown]
